FAERS Safety Report 6751693-5 (Version None)
Quarter: 2010Q2

REPORT INFORMATION
  Report Type: 
  Country: None (occurrence: None)
  Receive Date: 20100602
  Receipt Date: 20100525
  Transmission Date: 20101027
  Serious: Yes (Life-Threatening, Hospitalization, Disabling)
  Sender: FDA-Public Use
  Company Number: B0634258A

PATIENT
  Sex: Female
  Weight: 43.7 kg

DRUGS (5)
  1. ARIXTRA [Suspect]
     Indication: THROMBOSIS PROPHYLAXIS
     Dosage: 2.5MG PER DAY
     Route: 058
     Dates: start: 20091109, end: 20091126
  2. KARDEGIC [Suspect]
     Indication: ARTERITIS
     Dosage: 160MG PER DAY
     Route: 048
     Dates: start: 20090813, end: 20091126
  3. EXELON [Suspect]
     Dosage: 9.5MG PER DAY
     Route: 062
     Dates: start: 20090813
  4. OXYCONTIN [Suspect]
     Indication: POST-TRAUMATIC PAIN
     Dosage: 5MG ALTERNATE DAYS
     Route: 048
     Dates: start: 20091102
  5. LEVOTHYROXINE SODIUM [Concomitant]
     Indication: DRUG USE FOR UNKNOWN INDICATION
     Route: 048
     Dates: start: 20090813

REACTIONS (2)
  - DISABILITY [None]
  - RECTAL HAEMORRHAGE [None]
